FAERS Safety Report 9480769 (Version 1)
Quarter: 2013Q3

REPORT INFORMATION
  Report Type: Spontaneous
  Country: US (occurrence: US)
  Receive Date: 20130828
  Receipt Date: 20130828
  Transmission Date: 20140515
  Serious: Yes (Other)
  Sender: FDA-Public Use
  Company Number: US-AMGEN-KDL115350

PATIENT
  Age: 40 Year
  Sex: Female

DRUGS (2)
  1. ENBREL [Suspect]
     Indication: RHEUMATOID ARTHRITIS
     Dosage: 25 MG, 3 TIMES/WK
     Route: 058
     Dates: start: 20040426
  2. METHOTREXATE [Concomitant]
     Dosage: 17.5 MG, QWK
     Dates: start: 2002

REACTIONS (3)
  - Urticaria [Unknown]
  - Lip swelling [Unknown]
  - Dermatitis bullous [Unknown]
